FAERS Safety Report 23201018 (Version 4)
Quarter: 2023Q4

REPORT INFORMATION
  Report Type: Other
  Country: US (occurrence: US)
  Receive Date: 20231118
  Receipt Date: 20231118
  Transmission Date: 20240110
  Serious: No
  Sender: FDA-Public Use
  Company Number: US-TRAVERE-2023TVT00491

PATIENT
  Age: 26 Year
  Sex: Female
  Weight: 56.7 kg

DRUGS (8)
  1. FILSPARI [Suspect]
     Active Substance: SPARSENTAN
     Indication: IgA nephropathy
     Dosage: 200MG
     Route: 048
     Dates: start: 20230809
  2. FILSPARI [Suspect]
     Active Substance: SPARSENTAN
     Indication: Chronic kidney disease
     Dosage: 200MG 2 TAB X DAY
     Route: 048
     Dates: start: 20230905
  3. REPATHA [Concomitant]
     Active Substance: EVOLOCUMAB
  4. VASCEPA [Concomitant]
     Active Substance: ICOSAPENT ETHYL
  5. CALCIUM [Concomitant]
     Active Substance: CALCIUM
  6. MAGNESIUM [Concomitant]
     Active Substance: MAGNESIUM
  7. ALLOPURINOL [Concomitant]
     Active Substance: ALLOPURINOL
  8. JARDIANCE [Concomitant]
     Active Substance: EMPAGLIFLOZIN

REACTIONS (5)
  - Migraine [Unknown]
  - Fatigue [Unknown]
  - Diverticulum [None]
  - Protein total increased [Unknown]
  - Glomerular filtration rate decreased [Unknown]

NARRATIVE: CASE EVENT DATE: 20230905
